FAERS Safety Report 17076298 (Version 2)
Quarter: 2019Q4

REPORT INFORMATION
  Report Type: Spontaneous
  Country: BR (occurrence: BR)
  Receive Date: 20191126
  Receipt Date: 20191204
  Transmission Date: 20200122
  Serious: Yes (Hospitalization, Other)
  Sender: FDA-Public Use
  Company Number: BR-SA-2019SA320966

PATIENT
  Age: 28 Year
  Sex: Male

DRUGS (6)
  1. TACROLIMUS. [Suspect]
     Active Substance: TACROLIMUS
     Indication: PROPHYLAXIS AGAINST GRAFT VERSUS HOST DISEASE
     Dates: start: 20160508, end: 20160618
  2. CYCLOPHOSPHAMIDE. [Suspect]
     Active Substance: CYCLOPHOSPHAMIDE
     Indication: BONE MARROW CONDITIONING REGIMEN
     Dates: start: 2016
  3. BUSULFAN. [Suspect]
     Active Substance: BUSULFAN
     Indication: BONE MARROW CONDITIONING REGIMEN
     Dates: start: 2016
  4. ANTI-THYMOCYTE GLOBULIN (RABBIT) NOS [Suspect]
     Active Substance: LAPINE T-LYMPHOCYTE IMMUNE GLOBULIN
     Indication: BONE MARROW CONDITIONING REGIMEN
     Dates: start: 2016
  5. METHYLPREDNISOLONE. [Suspect]
     Active Substance: METHYLPREDNISOLONE
     Indication: PROPHYLAXIS AGAINST GRAFT VERSUS HOST DISEASE
     Dosage: UNK
     Dates: start: 20160508, end: 20160618
  6. CICLOSPORIN [Suspect]
     Active Substance: CYCLOSPORINE
     Indication: PROPHYLAXIS AGAINST GRAFT VERSUS HOST DISEASE
     Dosage: 300 MG, QD
     Dates: start: 20160407, end: 20160423

REACTIONS (10)
  - Oral herpes [Recovered/Resolved]
  - Mouth ulceration [Recovering/Resolving]
  - Actinomycosis [Recovered/Resolved]
  - Oral candidiasis [Recovered/Resolved]
  - Immunosuppression [Unknown]
  - Thrombocytopenia [Recovering/Resolving]
  - Gingival ulceration [Recovering/Resolving]
  - Odynophagia [Recovered/Resolved]
  - Anaemia [Recovering/Resolving]
  - Palatal ulcer [Recovering/Resolving]

NARRATIVE: CASE EVENT DATE: 2016
